FAERS Safety Report 16722467 (Version 3)
Quarter: 2019Q3

REPORT INFORMATION
  Report Type: Report from Study
  Country: None (occurrence: US)
  Receive Date: 20190820
  Receipt Date: 20190905
  Transmission Date: 20191005
  Serious: Yes (Hospitalization)
  Sender: FDA-Public Use
  Company Number: US-ABBVIE-19P-163-2879085-00

PATIENT
  Age: 61 Year
  Sex: Male
  Weight: 102.79 kg

DRUGS (10)
  1. PROCARDIA [Concomitant]
     Active Substance: NIFEDIPINE
     Indication: CARDIOMEGALY
     Route: 048
     Dates: start: 2012
  2. TESSALON [Concomitant]
     Active Substance: BENZONATATE
     Indication: BRONCHITIS
     Route: 048
     Dates: start: 20190728, end: 20190804
  3. ABREVA [Concomitant]
     Active Substance: DOCOSANOL
     Indication: ORAL HERPES
     Route: 061
     Dates: start: 20180527
  4. AMOX-CLAV [Concomitant]
     Active Substance: AMOXICILLIN\CLAVULANATE POTASSIUM
     Indication: SINUSITIS
  5. GUAIFENESIN. [Concomitant]
     Active Substance: GUAIFENESIN
     Indication: BRONCHITIS
     Route: 048
     Dates: start: 20190728, end: 20190804
  6. UPADACITINIB [Suspect]
     Active Substance: UPADACITINIB
     Indication: COLITIS ULCERATIVE
     Route: 048
     Dates: start: 20170628, end: 20190804
  7. DEXTROMETHORPHAN [Concomitant]
     Active Substance: DEXTROMETHORPHAN
     Indication: BRONCHITIS
     Route: 048
     Dates: start: 20190728, end: 20190804
  8. MULTI VITAMIN [Concomitant]
     Active Substance: VITAMINS
     Indication: ROUTINE HEALTH MAINTENANCE
     Route: 048
     Dates: start: 20000101
  9. UPADACITINIB [Suspect]
     Active Substance: UPADACITINIB
     Route: 048
     Dates: start: 20190818
  10. AMOX-CLAV [Concomitant]
     Active Substance: AMOXICILLIN\CLAVULANATE POTASSIUM
     Indication: BRONCHITIS
     Dosage: DOSE: 875-125 MG
     Route: 048
     Dates: start: 20190728, end: 20190804

REACTIONS (1)
  - Pneumonia bacterial [Recovered/Resolved]

NARRATIVE: CASE EVENT DATE: 20190804
